FAERS Safety Report 8901825 (Version 2)
Quarter: 2013Q1

REPORT INFORMATION
  Report Type: Spontaneous
  Country: US (occurrence: None)
  Receive Date: 20121106
  Receipt Date: 20121120
  Transmission Date: 20140127
  Serious: Yes (Other)
  Sender: FDA-Public Use
  Company Number: DKLU1085865

PATIENT
  Age: 31 Month
  Sex: Male

DRUGS (1)
  1. SABRIL (FOR ORAL SOLUTION)(SABRIL){VIGABATRIN) (500 MG, POWDER FOR ORAL SOLUTION) [Suspect]
     Indication: PRODUCT USED FOR UNKNOWN INDICATION
     Dates: start: 20100813

REACTIONS (1)
  - Pneumonia [None]
